FAERS Safety Report 5662483-9 (Version None)
Quarter: 2008Q1

REPORT INFORMATION
  Report Type: 
  Country: None (occurrence: None)
  Receive Date: 20080313
  Receipt Date: 20080310
  Transmission Date: 20080703
  Serious: Yes (Hospitalization)
  Sender: FDA-Public Use
  Company Number: US-BAYER-200816466NA

PATIENT
  Age: 35 Year
  Sex: Female

DRUGS (1)
  1. YAZ [Suspect]
     Dosage: TOTAL DAILY DOSE: 1 DF
     Route: 048
     Dates: start: 20071101

REACTIONS (1)
  - DEEP VEIN THROMBOSIS [None]
